FAERS Safety Report 12176677 (Version 1)
Quarter: 2016Q1

REPORT INFORMATION
  Report Type: Spontaneous
  Country: US (occurrence: US)
  Receive Date: 20160314
  Receipt Date: 20160314
  Transmission Date: 20160526
  Serious: No
  Sender: FDA-Public Use
  Company Number: US-AKORN PHARMACEUTICALS-2015VER00075

PATIENT
  Age: 23 Year
  Sex: Female

DRUGS (1)
  1. MYORISAN [Suspect]
     Active Substance: ISOTRETINOIN
     Indication: ACNE
     Dosage: 40 MG, 2X/DAY
     Route: 048
     Dates: start: 20150123, end: 20150202

REACTIONS (4)
  - Vision blurred [Recovering/Resolving]
  - Urticaria [Recovered/Resolved]
  - Rash macular [Recovered/Resolved]
  - Product substitution issue [Recovering/Resolving]

NARRATIVE: CASE EVENT DATE: 20150126
